FAERS Safety Report 14556776 (Version 2)
Quarter: 2018Q1

REPORT INFORMATION
  Report Type: Spontaneous
  Country: JP (occurrence: JP)
  Receive Date: 20180221
  Receipt Date: 20180327
  Transmission Date: 20180509
  Serious: Yes (Death, Hospitalization)
  Sender: FDA-Public Use
  Company Number: JP-ASTELLAS-2018JP001565

PATIENT
  Age: 77 Year
  Sex: Male

DRUGS (4)
  1. PROGRAF [Suspect]
     Active Substance: TACROLIMUS\TACROLIMUS ANHYDROUS
     Route: 048
     Dates: start: 2018
  2. PROGRAF [Suspect]
     Active Substance: TACROLIMUS\TACROLIMUS ANHYDROUS
     Indication: RHEUMATOID ARTHRITIS
     Route: 048
  3. PROGRAF [Suspect]
     Active Substance: TACROLIMUS\TACROLIMUS ANHYDROUS
     Indication: INTERSTITIAL LUNG DISEASE
     Route: 048
     Dates: end: 20180127
  4. PROGRAF [Suspect]
     Active Substance: TACROLIMUS\TACROLIMUS ANHYDROUS
     Route: 048
     Dates: start: 20180130, end: 2018

REACTIONS (3)
  - Off label use [Unknown]
  - Prescribed overdose [Unknown]
  - Interstitial lung disease [Fatal]

NARRATIVE: CASE EVENT DATE: 2018
